FAERS Safety Report 11082181 (Version 2)
Quarter: 2015Q4

REPORT INFORMATION
  Report Type: Spontaneous
  Country: US (occurrence: US)
  Receive Date: 20150501
  Receipt Date: 20151116
  Transmission Date: 20160304
  Serious: No
  Sender: FDA-Public Use
  Company Number: US-PFIZER INC-2015144023

PATIENT
  Age: 33 Year
  Sex: Male
  Weight: 75 kg

DRUGS (1)
  1. CLINDAMYCIN PHOSPHATE. [Suspect]
     Active Substance: CLINDAMYCIN PHOSPHATE
     Indication: ACNE
     Dosage: 2 GTT, UNK
     Route: 061
     Dates: start: 201501, end: 2015

REACTIONS (3)
  - Rash [Unknown]
  - Eye pain [Unknown]
  - Ocular hyperaemia [Unknown]
